FAERS Safety Report 16653785 (Version 1)
Quarter: 2019Q3

REPORT INFORMATION
  Report Type: Other
  Country: NL (occurrence: NL)
  Receive Date: 20190731
  Receipt Date: 20190731
  Transmission Date: 20191004
  Serious: No
  Sender: FDA-Public Use
  Company Number: NL-VITRUVIAS THERAPEUTICS-2071651

PATIENT
  Age: 51 Year
  Sex: Female

DRUGS (2)
  1. ADRENALIN [Concomitant]
     Active Substance: EPINEPHRINE
     Route: 058
  2. LIDOCAINE. [Suspect]
     Active Substance: LIDOCAINE
     Route: 058

REACTIONS (1)
  - Type IV hypersensitivity reaction [Recovering/Resolving]
